FAERS Safety Report 23520511 (Version 1)
Quarter: 2024Q1

REPORT INFORMATION
  Report Type: Spontaneous
  Country: JP (occurrence: JP)
  Receive Date: 20240214
  Receipt Date: 20240214
  Transmission Date: 20240410
  Serious: Yes (Death, Other)
  Sender: FDA-Public Use
  Company Number: JP-aspen-SDZ2023JP018596AA

PATIENT
  Age: 40 Year
  Sex: Female

DRUGS (1)
  1. NELARABINE [Suspect]
     Active Substance: NELARABINE
     Indication: Non-Hodgkin^s lymphoma
     Dosage: 1500 MG/M2 ON DAYS 1, 3, AND 5, REPEATED EVERY 21 DAYS
     Route: 065

REACTIONS (1)
  - Neurotoxicity [Fatal]
